FAERS Safety Report 5253539-3 (Version None)
Quarter: 2007Q1

REPORT INFORMATION
  Report Type: 
  Country: None (occurrence: None)
  Receive Date: 20070301
  Receipt Date: 20070219
  Transmission Date: 20070707
  Serious: Yes (Other)
  Sender: FDA-Public Use
  Company Number: US-PFIZER INC-2007015088

PATIENT
  Sex: Female

DRUGS (10)
  1. CHANTIX [Suspect]
     Indication: EX-SMOKER
     Route: 048
  2. XANAX [Concomitant]
     Route: 048
  3. WELLBUTRIN [Concomitant]
     Route: 048
  4. SYNTHROID [Concomitant]
     Route: 048
  5. NEXIUM [Concomitant]
     Indication: GASTROOESOPHAGEAL REFLUX DISEASE
     Route: 048
  6. LODINE [Concomitant]
     Route: 048
  7. METOPROLOL SUCCINATE [Concomitant]
     Route: 048
  8. LAMICTAL [Concomitant]
     Route: 048
  9. LEXAPRO [Concomitant]
     Route: 048
  10. ACETYLSALICYLIC ACID SRT [Concomitant]
     Route: 048

REACTIONS (4)
  - ACTIVITIES OF DAILY LIVING IMPAIRED [None]
  - NAUSEA [None]
  - PAIN [None]
  - SOMNOLENCE [None]
